FAERS Safety Report 4851763-2 (Version None)
Quarter: 2005Q4

REPORT INFORMATION
  Report Type: 
  Country: None (occurrence: None)
  Receive Date: 20051209
  Receipt Date: 20051209
  Transmission Date: 20060501
  Serious: Yes (Other)
  Sender: FDA-Public Use
  Company Number: None

PATIENT
  Sex: Female

DRUGS (1)
  1. OXYCONTIN [Suspect]
     Indication: SCIATIC NERVE NEUROPATHY
     Dosage: 1 TABLET BY MOUTH EVERY 12 HOURS
     Dates: start: 20051209

REACTIONS (1)
  - DRUG INEFFECTIVE [None]
